FAERS Safety Report 8175763-2 (Version None)
Quarter: 2012Q1

REPORT INFORMATION
  Report Type: 
  Country: None (occurrence: None)
  Receive Date: 20120228
  Receipt Date: 20120228
  Transmission Date: 20120608
  Serious: Yes (Hospitalization)
  Sender: FDA-Public Use
  Company Number: None

PATIENT
  Age: 75 Year
  Sex: Male
  Weight: 53 kg

DRUGS (1)
  1. INSULIN [Suspect]
     Indication: TYPE 1 DIABETES MELLITUS
     Dosage: SQ
     Route: 058
     Dates: start: 20120113, end: 20120223

REACTIONS (2)
  - HYPOGLYCAEMIA [None]
  - UNRESPONSIVE TO STIMULI [None]
